FAERS Safety Report 9949379 (Version 2)
Quarter: 2014Q2

REPORT INFORMATION
  Report Type: Spontaneous
  Country: US (occurrence: US)
  Receive Date: 20140304
  Receipt Date: 20140428
  Transmission Date: 20141212
  Serious: No
  Sender: FDA-Public Use
  Company Number: US-PFIZER INC-2014058546

PATIENT
  Age: 84 Year
  Sex: Male

DRUGS (2)
  1. AMLODIPINE BESILATE [Suspect]
     Dosage: UNK
  2. BYSTOLIC [Suspect]
     Dosage: UNK

REACTIONS (2)
  - Hypoacusis [Unknown]
  - Blood pressure inadequately controlled [Unknown]
